FAERS Safety Report 7623977-X (Version None)
Quarter: 2011Q3

REPORT INFORMATION
  Report Type: 
  Country: None (occurrence: None)
  Receive Date: 20110720
  Receipt Date: 20110531
  Transmission Date: 20111222
  Serious: Yes (Hospitalization)
  Sender: FDA-Public Use
  Company Number: US-BRISTOL-MYERS SQUIBB COMPANY-15791361

PATIENT
  Sex: Female

DRUGS (4)
  1. YERVOY [Suspect]
  2. IMODIUM [Concomitant]
  3. OCTREOTIDE ACETATE [Concomitant]
  4. SOLU-MEDROL [Concomitant]

REACTIONS (2)
  - DIARRHOEA [None]
  - COLITIS [None]
